FAERS Safety Report 5050627-1 (Version None)
Quarter: 2006Q3

REPORT INFORMATION
  Report Type: 
  Country: None (occurrence: None)
  Receive Date: 20060710
  Receipt Date: 20060629
  Transmission Date: 20061208
  Serious: Yes (Life-Threatening)
  Sender: FDA-Public Use
  Company Number: T200600728

PATIENT
  Age: 30 Year
  Sex: Female

DRUGS (4)
  1. HEXABRIX [Suspect]
     Indication: ANGIOGRAM CEREBRAL
     Dosage: 2 ML SINGLE INTRA-ARTERIAL
     Route: 013
     Dates: start: 20060621, end: 20060621
  2. WARFARIN SODIUM [Concomitant]
  3. ASPIRIN [Concomitant]
  4. SENNOSIDE A+B [Concomitant]

REACTIONS (4)
  - ANAPHYLACTIC SHOCK [None]
  - CONTRAST MEDIA REACTION [None]
  - DYSPHORIA [None]
  - LOSS OF CONSCIOUSNESS [None]
